FAERS Safety Report 9638874 (Version 1)
Quarter: 2013Q4

REPORT INFORMATION
  Report Type: Spontaneous
  Country: US (occurrence: US)
  Receive Date: 20131022
  Receipt Date: 20131022
  Transmission Date: 20140711
  Serious: No
  Sender: FDA-Public Use
  Company Number: US-BRISTOL-MYERS SQUIBB COMPANY-19128552

PATIENT
  Age: 85 Year
  Sex: Male
  Weight: 77.55 kg

DRUGS (12)
  1. ELIQUIS [Suspect]
  2. RYTHMOL [Suspect]
  3. ATENOLOL [Concomitant]
  4. ZOCOR [Concomitant]
  5. MULTIVITAMIN [Concomitant]
  6. GLUCOSAMINE [Concomitant]
  7. FISH OIL [Concomitant]
  8. TRAMADOL HCL [Concomitant]
  9. GABAPENTIN [Concomitant]
  10. ASPIRIN [Concomitant]
  11. SYNTHROID [Concomitant]
  12. CRANBERRY [Concomitant]

REACTIONS (5)
  - Constipation [Unknown]
  - Faeces discoloured [Unknown]
  - Fall [Unknown]
  - Haematoma [Unknown]
  - Drug administration error [Unknown]
